FAERS Safety Report 9222952 (Version 1)
Quarter: 2013Q2

REPORT INFORMATION
  Report Type: Spontaneous
  Country: NL (occurrence: NL)
  Receive Date: 20130410
  Receipt Date: 20130410
  Transmission Date: 20140414
  Serious: Yes (Other)
  Sender: FDA-Public Use
  Company Number: NL-ROCHE-1211172

PATIENT
  Age: 48 Year
  Sex: Male

DRUGS (6)
  1. VEMURAFENIB [Suspect]
     Indication: METASTATIC MALIGNANT MELANOMA
     Route: 048
     Dates: start: 20121112, end: 20130402
  2. VALPROIC ACID [Concomitant]
     Route: 048
  3. FENTANYL [Concomitant]
     Route: 062
  4. OMEPRAZOLE [Concomitant]
     Route: 048
  5. MOVICOLON [Concomitant]
     Route: 048
  6. PENIDURAL [Concomitant]
     Indication: METASTATIC MALIGNANT MELANOMA
     Dosage: 1.200.000
     Route: 065

REACTIONS (1)
  - Haemolysis [Not Recovered/Not Resolved]
